FAERS Safety Report 9548344 (Version 1)
Quarter: 2013Q2

REPORT INFORMATION
  Report Type: Spontaneous
  Country: US (occurrence: None)
  Receive Date: 20130627
  Receipt Date: 20130627
  Transmission Date: 20140414
  Serious: No
  Sender: FDA-Public Use
  Company Number: 1000044893

PATIENT
  Age: 63 Year
  Sex: Male

DRUGS (10)
  1. LINZESS (LINACLOTIDE) (145 MICROGRAM, CAPSULES) [Suspect]
     Indication: CONSTIPATION
     Route: 048
     Dates: start: 201304, end: 201304
  2. HYDROCHLOROTHIZIDE (HYDROCHLOROTHIAZIDE) (HYDROCHLOROTHIAZIDE) [Concomitant]
  3. LEXAPRO (ESCITALOP [Concomitant]
  4. LEXAPRO(ESCITALOPRAM OXALATE)(ESCITALOPRAM OXALATE) [Concomitant]
  5. WELLBUTRIN(BUPROPION HYDROCHLORIDE)(BUPROPION HYDROCHLORIDE) [Concomitant]
  6. BUSPIRONE(BUSPIRONE)(BUSPIRONE) [Concomitant]
  7. SIMVASTATIN(SIMVASTATIN)(SIMVASTATIN) [Concomitant]
  8. LEVOTHYROXINE(LEVOTHYROXINE SODIUM)(LEVOTHYROXINE SODIUM) [Concomitant]
  9. NEXIUM(ESOMEPRAZOLE)(ESOMEPRAZOLE) [Concomitant]
  10. TAMSULOSIN(TAMSULOSIN)(TAMSULOSIN) [Concomitant]

REACTIONS (3)
  - Diarrhoea [None]
  - Abdominal pain upper [None]
  - Nausea [None]
